FAERS Safety Report 5028660-5 (Version None)
Quarter: 2006Q2

REPORT INFORMATION
  Report Type: 
  Country: None (occurrence: None)
  Receive Date: 20060501
  Receipt Date: 20060228
  Transmission Date: 20061013
  Serious: No
  Sender: FDA-Public Use
  Company Number: 200611140BWH

PATIENT
  Age: 68 Year
  Sex: Male

DRUGS (5)
  1. NEXAVAR [Suspect]
     Indication: RENAL CELL CARCINOMA STAGE UNSPECIFIED
     Dosage: SEE IMAGE
     Route: 048
     Dates: start: 20060205, end: 20060214
  2. NEXAVAR [Suspect]
     Indication: RENAL CELL CARCINOMA STAGE UNSPECIFIED
     Dosage: SEE IMAGE
     Route: 048
     Dates: start: 20060221
  3. ATENOLOL [Concomitant]
  4. NEXIUM [Concomitant]
  5. MULTI-VITAMIN [Concomitant]

REACTIONS (4)
  - DYSPHONIA [None]
  - GINGIVAL PAIN [None]
  - GLOSSODYNIA [None]
  - ORAL PAIN [None]
